FAERS Safety Report 6445883-9 (Version None)
Quarter: 2009Q4

REPORT INFORMATION
  Report Type: 
  Country: None (occurrence: None)
  Receive Date: 20091119
  Receipt Date: 20081218
  Transmission Date: 20100525
  Serious: No
  Sender: FDA-Public Use
  Company Number: A0567247A

PATIENT
  Age: 53 Year
  Sex: Female

DRUGS (7)
  1. WELLBUTRIN SR [Suspect]
     Indication: DEPRESSION
     Dosage: 200MG TWICE PER DAY
     Route: 048
  2. WELLBUTRIN SR [Suspect]
     Route: 048
  3. PLAVIX [Concomitant]
  4. VERAPAMIL [Concomitant]
  5. MOBIC [Concomitant]
  6. PREVACID [Concomitant]
  7. METFORMIN HCL [Concomitant]

REACTIONS (2)
  - DRUG INEFFECTIVE [None]
  - EXPIRED DRUG ADMINISTERED [None]
